FAERS Safety Report 10700051 (Version 2)
Quarter: 2015Q1

REPORT INFORMATION
  Report Type: Spontaneous
  Country: US (occurrence: US)
  Receive Date: 20150109
  Receipt Date: 20150119
  Transmission Date: 20150721
  Serious: Yes (Death)
  Sender: FDA-Public Use
  Company Number: CHPA2015US000538

PATIENT
  Age: 70 Year
  Sex: Male

DRUGS (3)
  1. GAS-X [Suspect]
     Active Substance: DIMETHICONE
     Indication: GASTRIC DISORDER
     Dosage: UNK
     Route: 048
  2. BEANO [Concomitant]
     Active Substance: ASPERGILLUS NIGER .ALPHA.-GALACTOSIDASE
     Indication: PRODUCT USED FOR UNKNOWN INDICATION
     Route: 065
  3. GAS-X EXTRA STRENGTH SOFTGELS [Suspect]
     Active Substance: DIMETHICONE
     Indication: GASTRIC DISORDER
     Dosage: UNK
     Route: 065

REACTIONS (2)
  - Aneurysm [Fatal]
  - Product use issue [Unknown]
